FAERS Safety Report 5831675-8 (Version None)
Quarter: 2008Q3

REPORT INFORMATION
  Report Type: 
  Country: None (occurrence: None)
  Receive Date: 20080730
  Receipt Date: 20080722
  Transmission Date: 20090109
  Serious: Yes (Hospitalization)
  Sender: FDA-Public Use
  Company Number: CIP08000745

PATIENT
  Age: 68 Year
  Sex: Female
  Weight: 63.5 kg

DRUGS (9)
  1. ACTONEL [Suspect]
     Indication: OSTEOPOROSIS POSTMENOPAUSAL
     Dosage: 35 MG ONCE WEEKLY, ORAL
     Route: 048
     Dates: start: 20030101, end: 20080101
  2. PLAVIX /0122070/ (CLOPIDOGREL) [Concomitant]
  3. COUMADIN [Concomitant]
  4. TOPROL-XL [Concomitant]
  5. NORVASC /00972401/ (AMLODIPINE) [Concomitant]
  6. CLONIDINE [Concomitant]
  7. LIPITOR (ATOVASTTIN CALCIUM) [Concomitant]
  8. ASPIRIN [Concomitant]
  9. MULTIVITAMIN /00831701/ (VITAMINS NOS) [Concomitant]

REACTIONS (1)
  - ATRIAL FIBRILLATION [None]
